FAERS Safety Report 25231438 (Version 1)
Quarter: 2025Q2

REPORT INFORMATION
  Report Type: Spontaneous
  Country: IL (occurrence: IL)
  Receive Date: 20250423
  Receipt Date: 20250423
  Transmission Date: 20250716
  Serious: Yes (Hospitalization, Other)
  Sender: SANOFI AVENTIS
  Company Number: IL-SA-2025SA114449

PATIENT
  Age: 57 Year
  Sex: Female
  Weight: 68 kg

DRUGS (24)
  1. DUPIXENT [Suspect]
     Active Substance: DUPILUMAB
     Indication: Asthma
     Dates: start: 20220816
  2. DUPIXENT [Suspect]
     Active Substance: DUPILUMAB
     Dates: start: 20250225, end: 20250225
  3. DUPIXENT [Suspect]
     Active Substance: DUPILUMAB
     Dosage: 300 MG, QOW
     Dates: start: 2025
  4. TEZEPELUMAB [Concomitant]
     Active Substance: TEZEPELUMAB
     Dosage: UNK UNK, QD
  5. FEXOFENADINE HYDROCHLORIDE [Concomitant]
     Active Substance: FEXOFENADINE HYDROCHLORIDE
     Dosage: 1 DF, BID
  6. LIVOSTIN [Concomitant]
     Active Substance: LEVOCABASTINE HYDROCHLORIDE
     Dosage: 1 DROP TID
  7. SPIRIVA RESPIMAT [Concomitant]
     Active Substance: TIOTROPIUM BROMIDE
     Dosage: 1 DF BID
  8. THEOTRIM [THEOPHYLLINE] [Concomitant]
     Dosage: 200 MG BID
  9. SYMBICORT [Concomitant]
     Active Substance: BUDESONIDE\FORMOTEROL FUMARATE DIHYDRATE
     Dosage: 2 DF BID
  10. ALENDRONATE SODIUM [Concomitant]
     Active Substance: ALENDRONATE SODIUM
     Dosage: 4.70 MG QW
  11. QVAR [Concomitant]
     Active Substance: BECLOMETHASONE DIPROPIONATE
     Dosage: 2 DF BID
  12. XOLAIR [Concomitant]
     Active Substance: OMALIZUMAB
     Dosage: 4 DF QD
  13. VERAPAMIL [Concomitant]
     Active Substance: VERAPAMIL HYDROCHLORIDE
     Dosage: 40 MG BID
  14. DIOVAN [Concomitant]
     Active Substance: VALSARTAN
     Dosage: 80 MG QD
  15. TIPOTAF [Concomitant]
     Dosage: 1 DF TID
  16. NEXIUM I.V. [Concomitant]
     Active Substance: ESOMEPRAZOLE SODIUM
     Dosage: 40 MG QD
  17. SODIUM CHLORIDE [Concomitant]
     Active Substance: SODIUM CHLORIDE
     Dosage: 1 UNK, TID
  18. VALSARTAN [Concomitant]
     Active Substance: VALSARTAN
     Dosage: 1 DF, QD
  19. VENTOLIN RESPIRATOR [Concomitant]
     Dosage: 0.5 UNK, TID
  20. CALTRATE WITH VITAMIN D [Concomitant]
     Active Substance: CALCIUM CARBONATE\CHOLECALCIFEROL
     Dosage: 1 DF, QD
  21. TEZSPIRE [Concomitant]
     Active Substance: TEZEPELUMAB-EKKO
  22. AZENIL [AZITHROMYCIN] [Concomitant]
  23. BECLOMETHASONE DIPROPIONATE\FORMOTEROL FUMARATE\GLYCOPYRROLATE [Concomitant]
     Active Substance: BECLOMETHASONE DIPROPIONATE\FORMOTEROL FUMARATE\GLYCOPYRROLATE
  24. LEVOFLOXACIN [Concomitant]
     Active Substance: LEVOFLOXACIN

REACTIONS (11)
  - Pneumonia [Unknown]
  - Pleural effusion [Unknown]
  - Pain [Unknown]
  - Fatigue [Unknown]
  - Asthma [Unknown]
  - Cough [Unknown]
  - Dyspnoea [Unknown]
  - Sputum discoloured [Unknown]
  - COVID-19 [Unknown]
  - Headache [Unknown]
  - Arthralgia [Unknown]

NARRATIVE: CASE EVENT DATE: 20220801
